FAERS Safety Report 7787663-8 (Version None)
Quarter: 2011Q3

REPORT INFORMATION
  Report Type: 
  Country: None (occurrence: None)
  Receive Date: 20110929
  Receipt Date: 20110926
  Transmission Date: 20111222
  Serious: Yes (Disabling, Other)
  Sender: FDA-Public Use
  Company Number: US-BAYER-2011-076602

PATIENT
  Sex: Female

DRUGS (3)
  1. CIPROFLOXACIN [Suspect]
     Dosage: UNK
     Dates: end: 20110801
  2. CIPROFLOXACIN [Suspect]
     Indication: PNEUMONIA STAPHYLOCOCCAL
     Dosage: UNK
     Route: 048
     Dates: start: 20100901, end: 20110801
  3. ZOLOFT [Concomitant]
     Dosage: UNK

REACTIONS (2)
  - HYPERSENSITIVITY [None]
  - LIMB INJURY [None]
